FAERS Safety Report 24925182 (Version 1)
Quarter: 2025Q1

REPORT INFORMATION
  Report Type: Report from Study
  Country: US (occurrence: US)
  Receive Date: 20250204
  Receipt Date: 20250204
  Transmission Date: 20250409
  Serious: No
  Sender: EXELIXIS
  Company Number: US-EXELIXIS-CABO-24078084

PATIENT
  Sex: Male

DRUGS (2)
  1. CABOMETYX [Suspect]
     Active Substance: CABOZANTINIB S-MALATE
     Indication: Renal cancer
     Dosage: 60 MG, QD
     Route: 048
     Dates: start: 202405
  2. CABOMETYX [Suspect]
     Active Substance: CABOZANTINIB S-MALATE
     Dosage: 40 MG, QD
     Route: 048

REACTIONS (14)
  - Contusion [Recovered/Resolved]
  - Swollen tongue [Recovered/Resolved]
  - Glossodynia [Recovered/Resolved]
  - Blood pressure increased [Recovering/Resolving]
  - Fatigue [Recovered/Resolved]
  - Nausea [Recovered/Resolved]
  - Dizziness [Recovered/Resolved]
  - Arthralgia [Recovered/Resolved]
  - Chest discomfort [Recovered/Resolved]
  - Paranasal sinus hypersecretion [Recovered/Resolved]
  - Chills [Recovered/Resolved]
  - Night sweats [Recovered/Resolved]
  - Ageusia [Unknown]
  - Musculoskeletal stiffness [Unknown]
